FAERS Safety Report 4421306-6 (Version None)
Quarter: 2004Q3

REPORT INFORMATION
  Report Type: 
  Country: None (occurrence: None)
  Receive Date: 20040804
  Receipt Date: 20040726
  Transmission Date: 20050211
  Serious: Yes (Death, Hospitalization)
  Sender: FDA-Public Use
  Company Number: 24521

PATIENT
  Age: 68 Year
  Sex: Female

DRUGS (3)
  1. THEOPHYLLINE [Suspect]
     Dates: end: 20031117
  2. PAROXETINE HCL [Suspect]
     Indication: DEPRESSION
     Dosage: ORAL
     Route: 048
     Dates: start: 20031001, end: 20031101
  3. CLARITHROMYCIN [Suspect]
     Indication: LOWER RESPIRATORY TRACT INFECTION
     Dosage: ORAL
     Route: 048
     Dates: start: 20031101, end: 20031101

REACTIONS (18)
  - AORTIC STENOSIS [None]
  - CARDIAC FAILURE [None]
  - CARDIOMEGALY [None]
  - CARDIOTOXICITY [None]
  - CORONARY ARTERY ATHEROSCLEROSIS [None]
  - CORONARY ARTERY THROMBOSIS [None]
  - DRUG INTERACTION [None]
  - DRUG LEVEL INCREASED [None]
  - DRUG TOXICITY [None]
  - ELECTROCARDIOGRAM ABNORMAL [None]
  - GENERAL PHYSICAL HEALTH DETERIORATION [None]
  - HEART RATE INCREASED [None]
  - LOWER RESPIRATORY TRACT INFECTION [None]
  - MALAISE [None]
  - MYOCARDIAL INFARCTION [None]
  - MYOCARDIAL ISCHAEMIA [None]
  - NAUSEA [None]
  - VOMITING [None]
